FAERS Safety Report 25449348 (Version 1)
Quarter: 2025Q2

REPORT INFORMATION
  Report Type: Spontaneous
  Country: US (occurrence: US)
  Receive Date: 20250618
  Receipt Date: 20250618
  Transmission Date: 20250717
  Serious: No
  Sender: ROCHE
  Company Number: US-ROCHE-10000309822

PATIENT
  Age: 4 Year
  Sex: Male
  Weight: 16.78 kg

DRUGS (2)
  1. HEMLIBRA [Suspect]
     Active Substance: EMICIZUMAB-KXWH
     Indication: Factor VIII deficiency
     Dosage: STRENGTH- 60MG/0.4ML
     Route: 058
     Dates: start: 202303
  2. KOVALTRY INJECTION [Concomitant]

REACTIONS (1)
  - Splenic haemorrhage [Unknown]

NARRATIVE: CASE EVENT DATE: 20250605
